FAERS Safety Report 9631360 (Version 1)
Quarter: 2013Q4

REPORT INFORMATION
  Report Type: Spontaneous
  Country: DE (occurrence: DE)
  Receive Date: 20131018
  Receipt Date: 20131018
  Transmission Date: 20140711
  Serious: Yes (Other)
  Sender: FDA-Public Use
  Company Number: DE-TEVA-438003GER

PATIENT
  Age: 48 Year
  Sex: Female
  Weight: 64 kg

DRUGS (1)
  1. AMITRIPTYLIN [Suspect]
     Indication: INSOMNIA

REACTIONS (5)
  - Breast discharge [Recovered/Resolved]
  - Erythema [Recovered/Resolved]
  - Mastitis [Recovered/Resolved]
  - Musculoskeletal pain [Recovered/Resolved]
  - Pyrexia [Recovered/Resolved]
